FAERS Safety Report 5556901-4 (Version None)
Quarter: 2007Q4

REPORT INFORMATION
  Report Type: 
  Country: None (occurrence: None)
  Receive Date: 20071214
  Receipt Date: 20071203
  Transmission Date: 20080405
  Serious: Yes (Hospitalization)
  Sender: FDA-Public Use
  Company Number: PHBS2007JP19552

PATIENT
  Age: 12 Year
  Sex: Male

DRUGS (12)
  1. CYCLOSPORINE [Suspect]
     Indication: BEHCET'S SYNDROME
     Dosage: 150 MG/D
     Route: 065
  2. MESALAMINE [Concomitant]
     Indication: BEHCET'S SYNDROME
     Dosage: 750 MG/D
  3. MESALAMINE [Concomitant]
     Dosage: 1500 MG/D
  4. STEROIDS NOS [Concomitant]
     Indication: BEHCET'S SYNDROME
     Dosage: PULSE THERAPY
  5. COLCHICINE [Concomitant]
     Indication: BEHCET'S SYNDROME
     Dosage: 0.3 MG/D
  6. COLCHICINE [Concomitant]
     Dosage: 0.75 MG/D
  7. COLCHICINE [Concomitant]
     Dosage: 1 MG/D
  8. PREDNISOLONE [Concomitant]
     Indication: BEHCET'S SYNDROME
     Dosage: 25 MG/D
  9. PREDNISOLONE [Concomitant]
     Dosage: 6 MG/D
  10. PREDNISOLONE [Concomitant]
     Dosage: 20 MG/D
  11. PREDNISOLONE [Concomitant]
     Dosage: 14 MG/D
  12. PREDNISOLONE [Concomitant]
     Dosage: 10 MG/D

REACTIONS (3)
  - ABDOMINAL SYMPTOM [None]
  - C-REACTIVE PROTEIN INCREASED [None]
  - STOMATITIS [None]
